FAERS Safety Report 10037716 (Version 1)
Quarter: 2014Q1

REPORT INFORMATION
  Report Type: Spontaneous
  Country: US (occurrence: US)
  Receive Date: 20140326
  Receipt Date: 20140326
  Transmission Date: 20141002
  Serious: No
  Sender: FDA-Public Use
  Company Number: US-PFIZER INC-2014083895

PATIENT
  Sex: Female

DRUGS (3)
  1. LEVOXYL [Suspect]
     Indication: THYROID DISORDER
     Dosage: UNK
  2. SYNTHROID [Suspect]
     Indication: THYROID DISORDER
     Dosage: UNK
  3. LEVOTHYROXINE [Suspect]
     Indication: THYROID DISORDER
     Dosage: UNK

REACTIONS (1)
  - Drug ineffective [Unknown]
